FAERS Safety Report 11196129 (Version 1)
Quarter: 2015Q2

REPORT INFORMATION
  Report Type: Spontaneous
  Country: US (occurrence: None)
  Receive Date: 20150616
  Receipt Date: 20150616
  Transmission Date: 20150821
  Serious: Yes (Hospitalization)
  Sender: FDA-Public Use
  Company Number: None

PATIENT
  Age: 47 Year
  Sex: Male
  Weight: 86.2 kg

DRUGS (1)
  1. INTRON A [Suspect]
     Active Substance: INTERFERON ALFA-2B
     Dosage: 20 MU
     Dates: end: 20140428

REACTIONS (3)
  - Blood triglycerides increased [None]
  - Hypertriglyceridaemia [None]
  - Condition aggravated [None]

NARRATIVE: CASE EVENT DATE: 20140430
